FAERS Safety Report 16190570 (Version 1)
Quarter: 2019Q2

REPORT INFORMATION
  Report Type: Spontaneous
  Country: US (occurrence: US)
  Receive Date: 20190412
  Receipt Date: 20190412
  Transmission Date: 20190711
  Serious: No
  Sender: FDA-Public Use
  Company Number: US-TEVA-2019-US-1035446

PATIENT
  Age: 12 Year
  Sex: Male

DRUGS (1)
  1. RISPERIDONE. [Suspect]
     Active Substance: RISPERIDONE
     Indication: DEPRESSED MOOD
     Route: 065

REACTIONS (3)
  - Cogwheel rigidity [Recovering/Resolving]
  - Reduced facial expression [Recovering/Resolving]
  - Bradykinesia [Recovering/Resolving]
